FAERS Safety Report 13984254 (Version 2)
Quarter: 2018Q2

REPORT INFORMATION
  Report Type: Spontaneous
  Country: GR (occurrence: GR)
  Receive Date: 20170918
  Receipt Date: 20180405
  Transmission Date: 20180711
  Serious: Yes (Life-Threatening, Hospitalization, Other)
  Sender: FDA-Public Use
  Company Number: GR-SA-2017SA169667

PATIENT
  Age: 74 Year
  Sex: Female

DRUGS (1)
  1. CLOPIDOGREL BISULFATE. [Suspect]
     Active Substance: CLOPIDOGREL BISULFATE
     Indication: CORONARY ARTERY DISEASE
     Route: 065

REACTIONS (14)
  - Nuchal rigidity [Unknown]
  - Paralysis [Unknown]
  - Kernig^s sign [Unknown]
  - Musculoskeletal pain [Unknown]
  - Dyspnoea [Unknown]
  - Headache [Unknown]
  - Hypoaesthesia [Unknown]
  - Quadriparesis [Unknown]
  - Hemiparesis [Unknown]
  - Spinal epidural haematoma [Not Recovered/Not Resolved]
  - Nausea [Unknown]
  - Chest expansion decreased [Unknown]
  - Neck pain [Unknown]
  - Hyporeflexia [Unknown]
